FAERS Safety Report 14246434 (Version 1)
Quarter: 2017Q4

REPORT INFORMATION
  Report Type: Spontaneous
  Country: US (occurrence: None)
  Receive Date: 20171201
  Receipt Date: 20171201
  Transmission Date: 20180321
  Serious: No
  Sender: FDA-Public Use
  Company Number: None

PATIENT
  Age: 62 Year
  Sex: Female

DRUGS (1)
  1. HUMIRA [Suspect]
     Active Substance: ADALIMUMAB
     Indication: CROHN^S DISEASE
     Route: 058
     Dates: start: 20171112, end: 20171112

REACTIONS (6)
  - Swelling face [None]
  - Lip swelling [None]
  - Therapy cessation [None]
  - Rash [None]
  - Vision blurred [None]
  - Pruritus [None]

NARRATIVE: CASE EVENT DATE: 20171112
